FAERS Safety Report 5822815-5 (Version None)
Quarter: 2008Q3

REPORT INFORMATION
  Report Type: 
  Country: None (occurrence: None)
  Receive Date: 20080722
  Receipt Date: 20080714
  Transmission Date: 20090109
  Serious: No
  Sender: FDA-Public Use
  Company Number: 002380

PATIENT
  Age: 13 Year
  Sex: Female

DRUGS (7)
  1. BUSULFEX [Suspect]
     Indication: STEM CELL TRANSPLANT
     Dosage: INTRAVENOUS
     Route: 042
     Dates: start: 20061201, end: 20061204
  2. CYCLOPHOSPHAMIDE [Concomitant]
  3. ANTILYMPHOCYTE IMMUNOGLOBULIN (RABBIT) (ANTILYMPHOCYTE IMMUNOGLOBULIN [Concomitant]
  4. PHENYTOIN [Concomitant]
  5. FILGRASTIM (FILGRASTIM) [Concomitant]
  6. METHOTREXATE [Concomitant]
  7. CYCLOSPORINE [Concomitant]

REACTIONS (6)
  - ANOREXIA [None]
  - BONE MARROW TRANSPLANT [None]
  - FEBRILE NEUTROPENIA [None]
  - MALAISE [None]
  - STOMATITIS [None]
  - TRANSPLANT REJECTION [None]
